FAERS Safety Report 9773960 (Version 3)
Quarter: 2014Q3

REPORT INFORMATION
  Report Type: Spontaneous
  Country: DE (occurrence: DE)
  Receive Date: 20131220
  Receipt Date: 20140908
  Transmission Date: 20150326
  Serious: Yes (Other)
  Sender: FDA-Public Use
  Company Number: DE-BIOGENIDEC-2013BI120912

PATIENT
  Age: 0 Day
  Sex: Male
  Weight: 0 kg

DRUGS (9)
  1. GABAPENTIN. [Concomitant]
     Active Substance: GABAPENTIN
     Indication: MATERNAL EXPOSURE TIMING UNSPECIFIED
     Route: 064
     Dates: end: 20130628
  2. ASS 100 [Concomitant]
     Active Substance: ASPIRIN
     Indication: THROMBOSIS PROPHYLAXIS
     Route: 064
     Dates: start: 20130412, end: 20130628
  3. REMERGIL [Concomitant]
     Active Substance: MIRTAZAPINE
     Indication: MATERNAL EXPOSURE TIMING UNSPECIFIED
     Route: 064
     Dates: start: 20130226, end: 20130628
  4. VITAVERLAN [Concomitant]
     Indication: PROPHYLAXIS OF NEURAL TUBE DEFECT
     Route: 064
     Dates: start: 20130117, end: 20130214
  5. GABAPENTIN. [Concomitant]
     Active Substance: GABAPENTIN
     Indication: MATERNAL EXPOSURE TIMING UNSPECIFIED
     Route: 064
     Dates: start: 20121118
  6. TYSABRI [Suspect]
     Active Substance: NATALIZUMAB
     Indication: MATERNAL EXPOSURE TIMING UNSPECIFIED
     Route: 064
     Dates: start: 2008, end: 20121206
  7. CLEXANE [Concomitant]
     Active Substance: ENOXAPARIN SODIUM
     Indication: THROMBOSIS
     Route: 064
     Dates: start: 20121118, end: 20130628
  8. FAMPYRA [Concomitant]
     Active Substance: DALFAMPRIDINE
     Indication: MATERNAL EXPOSURE TIMING UNSPECIFIED
     Route: 064
     Dates: start: 20121118, end: 20131210
  9. TYSABRI [Suspect]
     Active Substance: NATALIZUMAB
     Indication: MATERNAL EXPOSURE TIMING UNSPECIFIED
     Route: 064
     Dates: start: 20121118, end: 20131206

REACTIONS (8)
  - Retinopathy [Unknown]
  - Hypospadias [Not Recovered/Not Resolved]
  - Foetal growth restriction [Recovered/Resolved]
  - Atrial septal defect [Unknown]
  - Osteopenia [Unknown]
  - Small for dates baby [Not Recovered/Not Resolved]
  - Feeding disorder neonatal [Recovered/Resolved]
  - Neonatal respiratory distress syndrome [Recovered/Resolved]

NARRATIVE: CASE EVENT DATE: 20130628
